FAERS Safety Report 12048929 (Version 1)
Quarter: 2016Q1

REPORT INFORMATION
  Report Type: Spontaneous
  Country: US (occurrence: None)
  Receive Date: 20160208
  Receipt Date: 20160208
  Transmission Date: 20160526
  Serious: Yes (Disabling)
  Sender: FDA-Public Use
  Company Number: None

PATIENT
  Age: 46 Year
  Sex: Female
  Weight: 68.04 kg

DRUGS (6)
  1. ALTACAINE [Suspect]
     Active Substance: TETRACAINE HYDROCHLORIDE
     Indication: LASER THERAPY
     Route: 031
  2. CITALOPRAM [Concomitant]
     Active Substance: CITALOPRAM HYDROBROMIDE
  3. L-THYROXINE [Concomitant]
     Active Substance: LEVOTHYROXINE
  4. EXCEDRIN MIGRAINE [Concomitant]
     Active Substance: ACETAMINOPHEN\ASPIRIN\CAFFEINE
  5. ALTACAINE [Suspect]
     Active Substance: TETRACAINE HYDROCHLORIDE
     Indication: SKIN DISORDER
     Route: 031
  6. KIRKLAND SIGNATURE ALLER TEC ALLERGY [Concomitant]
     Active Substance: CETIRIZINE HYDROCHLORIDE

REACTIONS (7)
  - Eye pain [None]
  - Pain [None]
  - Vision blurred [None]
  - Lacrimation increased [None]
  - Visual impairment [None]
  - Eye irritation [None]
  - Eye burns [None]

NARRATIVE: CASE EVENT DATE: 20160125
